FAERS Safety Report 7676477-5 (Version None)
Quarter: 2011Q3

REPORT INFORMATION
  Report Type: 
  Country: None (occurrence: None)
  Receive Date: 20110809
  Receipt Date: 20110809
  Transmission Date: 20111222
  Serious: Yes (Hospitalization)
  Sender: FDA-Public Use
  Company Number: None

PATIENT
  Sex: Female
  Weight: 98 kg

DRUGS (2)
  1. CISPLATIN [Suspect]
     Dosage: 100 MG
  2. PEMETREXED [Suspect]
     Dosage: 1000 MG

REACTIONS (7)
  - HYPOALBUMINAEMIA [None]
  - NEUTROPENIA [None]
  - PSEUDOMONAS TEST POSITIVE [None]
  - ENTEROCOCCUS TEST POSITIVE [None]
  - WHITE BLOOD CELL COUNT DECREASED [None]
  - URINARY TRACT INFECTION [None]
  - HYPOCALCAEMIA [None]
